FAERS Safety Report 11792905 (Version 2)
Quarter: 2015Q4

REPORT INFORMATION
  Report Type: Spontaneous
  Country: US (occurrence: US)
  Receive Date: 20151202
  Receipt Date: 20151222
  Transmission Date: 20160305
  Serious: No
  Sender: FDA-Public Use
  Company Number: US-LEO PHARMA-238684

PATIENT
  Age: 44 Year
  Sex: Female

DRUGS (2)
  1. PICATO [Suspect]
     Active Substance: INGENOL MEBUTATE
     Indication: ACTINIC KERATOSIS
     Dates: start: 20151122, end: 20151123
  2. PICATO [Suspect]
     Active Substance: INGENOL MEBUTATE
     Indication: ACTINIC KERATOSIS
     Dates: start: 20151122, end: 20151124

REACTIONS (13)
  - Application site paraesthesia [Recovered/Resolved]
  - Application site warmth [Recovered/Resolved]
  - Application site papules [Recovered/Resolved]
  - Application site reaction [Recovered/Resolved]
  - Drug administration error [Unknown]
  - Application site swelling [Recovered/Resolved]
  - Application site pain [Recovered/Resolved]
  - Application site exfoliation [Recovered/Resolved]
  - Inappropriate schedule of drug administration [Unknown]
  - Application site erythema [Recovered/Resolved]
  - Application site pruritus [Recovered/Resolved]
  - Drug administered at inappropriate site [Unknown]
  - Application site scab [Recovered/Resolved]

NARRATIVE: CASE EVENT DATE: 20151122
